FAERS Safety Report 21807292 (Version 3)
Quarter: 2023Q1

REPORT INFORMATION
  Report Type: Report from Study
  Country: US (occurrence: US)
  Receive Date: 20230102
  Receipt Date: 20230309
  Transmission Date: 20230417
  Serious: Yes (Death, Other)
  Sender: FDA-Public Use
  Company Number: US-ACADIA PHARMACEUTICALS INC.-ACA-2022-PIM-004309

PATIENT
  Sex: Male

DRUGS (13)
  1. NUPLAZID [Suspect]
     Active Substance: PIMAVANSERIN TARTRATE
     Indication: Parkinson^s disease
     Dosage: 34 MILLIGRAM, QD
     Route: 048
     Dates: start: 20221208
  2. SINEMET [Concomitant]
     Active Substance: CARBIDOPA\LEVODOPA
     Dosage: 25/ 100
  3. AMANTADINE [Concomitant]
     Active Substance: AMANTADINE
     Dosage: 100 MG BID
  4. SEROQUEL [Concomitant]
     Active Substance: QUETIAPINE FUMARATE
     Dosage: 12.5 QHS
  5. ARICEPT [Concomitant]
     Active Substance: DONEPEZIL HYDROCHLORIDE
     Dosage: 100 HS
  6. MELATONIN [Concomitant]
     Active Substance: MELATONIN
     Dosage: QHS
  7. TRAZODONE [Concomitant]
     Active Substance: TRAZODONE HYDROCHLORIDE
     Dosage: 50 QHS
  8. METHOTREXATE [Concomitant]
     Active Substance: METHOTREXATE
  9. LINZESS [Concomitant]
     Active Substance: LINACLOTIDE
  10. LISINOPRIL [Concomitant]
     Active Substance: LISINOPRIL
  11. FLOMAX [Concomitant]
     Active Substance: TAMSULOSIN HYDROCHLORIDE
  12. NIFEDIPINE [Concomitant]
     Active Substance: NIFEDIPINE
  13. PRAVACHOL [Concomitant]
     Active Substance: PRAVASTATIN SODIUM

REACTIONS (1)
  - Death [Fatal]
